FAERS Safety Report 7956754-0 (Version None)
Quarter: 2011Q4

REPORT INFORMATION
  Report Type: 
  Country: None (occurrence: None)
  Receive Date: 20111205
  Receipt Date: 20111114
  Transmission Date: 20120403
  Serious: No
  Sender: FDA-Public Use
  Company Number: US-ROXANE LABORATORIES, INC.-2011-RO-01646RO

PATIENT
  Sex: Female

DRUGS (2)
  1. COUMADIN [Concomitant]
  2. MEGESTROL ACETATE [Suspect]
     Indication: DECREASED APPETITE
     Route: 048

REACTIONS (1)
  - VAGINAL HAEMORRHAGE [None]
